FAERS Safety Report 4975023-4 (Version None)
Quarter: 2006Q2

REPORT INFORMATION
  Report Type: 
  Country: None (occurrence: None)
  Receive Date: 20060414
  Receipt Date: 20060414
  Transmission Date: 20061013
  Serious: Yes (Hospitalization)
  Sender: FDA-Public Use
  Company Number: None

PATIENT
  Age: 78 Year
  Sex: Male
  Weight: 107.0489 kg

DRUGS (2)
  1. CIPROFLOXACIN HCL [Suspect]
     Indication: LUNG INFECTION PSEUDOMONAL
     Dosage: 400 MG  Q12 HOURS   IV
     Route: 042
     Dates: start: 20060327, end: 20060404
  2. AZTREONAM [Suspect]
     Indication: LUNG INFECTION PSEUDOMONAL
     Dosage: 2 GM  Q8HRS   IV
     Route: 042
     Dates: start: 20060330, end: 20060404

REACTIONS (1)
  - FAECAL INCONTINENCE [None]
